FAERS Safety Report 17420818 (Version 1)
Quarter: 2020Q1

REPORT INFORMATION
  Report Type: Report from Study
  Country: AR (occurrence: AR)
  Receive Date: 20200214
  Receipt Date: 20200214
  Transmission Date: 20200409
  Serious: Yes (Death)
  Sender: FDA-Public Use
  Company Number: NVSC2020AR040670

PATIENT
  Age: 83 Year
  Sex: Male

DRUGS (1)
  1. REVOLADE [Suspect]
     Active Substance: ELTROMBOPAG
     Indication: MYELOFIBROSIS
     Dosage: 20 MG, QD
     Route: 065
     Dates: start: 20190308

REACTIONS (1)
  - Death [Fatal]

NARRATIVE: CASE EVENT DATE: 20200211
